FAERS Safety Report 13445906 (Version 4)
Quarter: 2018Q2

REPORT INFORMATION
  Report Type: Spontaneous
  Country: US (occurrence: US)
  Receive Date: 20170417
  Receipt Date: 20180528
  Transmission Date: 20180711
  Serious: Yes (Hospitalization, Other)
  Sender: FDA-Public Use
  Company Number: US-AUROBINDO-AUR-APL-2017-32509

PATIENT
  Age: 62 Year
  Sex: Male

DRUGS (6)
  1. ACICLOVIR [Suspect]
     Active Substance: ACYCLOVIR
     Indication: HERPES ZOSTER DISSEMINATED
     Dosage: 12.1 MG/KG, EVERY 12 HOURS
     Route: 042
  2. ACICLOVIR [Interacting]
     Active Substance: ACYCLOVIR
     Indication: VARICELLA ZOSTER VIRUS INFECTION
  3. MYCOPHEN [Interacting]
     Active Substance: MYCOPHENOLATE MOFETIL
     Indication: IMMUNOSUPPRESSION
     Dosage: UNK
     Route: 065
  4. VANCOMYCIN [Concomitant]
     Active Substance: VANCOMYCIN
     Indication: BACTERIAL INFECTION
     Dosage: 15 MILLIGRAM/KILOGRAM
     Route: 042
  5. TACROLIMUS. [Interacting]
     Active Substance: TACROLIMUS
     Indication: IMMUNOSUPPRESSION
     Dosage: ()
     Route: 065
  6. VALACICLOVIR [Concomitant]
     Active Substance: VALACYCLOVIR HYDROCHLORIDE
     Indication: INFECTION REACTIVATION
     Dosage: ()
     Route: 048

REACTIONS (18)
  - Neurotoxicity [Recovered/Resolved]
  - Disorientation [Recovered/Resolved]
  - Hallucination, visual [Recovering/Resolving]
  - Hypovolaemia [Unknown]
  - Erythema [Recovered/Resolved]
  - Nephropathy toxic [Recovered/Resolved]
  - Confusional state [Recovered/Resolved]
  - Asterixis [Unknown]
  - Skin lesion [Unknown]
  - Proteinuria [Recovering/Resolving]
  - Hyporesponsive to stimuli [Recovering/Resolving]
  - Drug interaction [Recovered/Resolved]
  - Mental status changes [Recovered/Resolved]
  - Flat affect [Recovering/Resolving]
  - Unresponsive to stimuli [Recovering/Resolving]
  - Renal impairment [Recovering/Resolving]
  - Somnolence [Recovered/Resolved]
  - Hydronephrosis [Recovering/Resolving]
